APPROVED DRUG PRODUCT: LEUCOVORIN CALCIUM PRESERVATIVE FREE
Active Ingredient: LEUCOVORIN CALCIUM
Strength: EQ 50MG BASE/VIAL
Dosage Form/Route: INJECTABLE;INJECTION
Application: A040338 | Product #001
Applicant: AMERICAN REGENT INC
Approved: Jan 31, 2001 | RLD: No | RS: No | Type: DISCN